FAERS Safety Report 9023980 (Version 1)
Quarter: 2013Q1

REPORT INFORMATION
  Report Type: Spontaneous
  Country: JP (occurrence: JP)
  Receive Date: 20130122
  Receipt Date: 20130122
  Transmission Date: 20140127
  Serious: Yes (Other)
  Sender: FDA-Public Use
  Company Number: JP-009507513-1301JPN008940

PATIENT
  Age: 29 Year
  Sex: Female

DRUGS (2)
  1. RINDERON [Suspect]
     Dosage: UNK
     Dates: start: 201003, end: 201012
  2. RINDERON [Suspect]
     Dosage: UNK
     Dates: start: 201003, end: 201007

REACTIONS (1)
  - Osteonecrosis [Unknown]
